FAERS Safety Report 6033275-6 (Version None)
Quarter: 2009Q1

REPORT INFORMATION
  Report Type: 
  Country: None (occurrence: None)
  Receive Date: 20090105
  Receipt Date: 20080605
  Transmission Date: 20090719
  Serious: Yes (Hospitalization)
  Sender: FDA-Public Use
  Company Number: US-001165

PATIENT
  Age: 42 Year
  Sex: Female

DRUGS (1)
  1. MULTIHANCE [Suspect]
     Indication: NUCLEAR MAGNETIC RESONANCE IMAGING BRAIN
     Dosage: 20ML QD INTRAVENOUS
     Route: 042
     Dates: start: 20080605, end: 20080605

REACTIONS (1)
  - ANAPHYLACTOID REACTION [None]
